FAERS Safety Report 23792663 (Version 1)
Quarter: 2024Q2

REPORT INFORMATION
  Report Type: Report from Study
  Country: US (occurrence: US)
  Receive Date: 20240429
  Receipt Date: 20240429
  Transmission Date: 20240716
  Serious: Yes (Other)
  Sender: FDA-Public Use
  Company Number: US-UCBSA-2024016493

PATIENT
  Sex: Male

DRUGS (1)
  1. BRIVARACETAM [Suspect]
     Active Substance: BRIVARACETAM
     Indication: Seizure
     Dosage: 100 MILLIGRAM, 2X/DAY (BID)

REACTIONS (5)
  - Seizure [Not Recovered/Not Resolved]
  - Headache [Recovering/Resolving]
  - Intentional product use issue [Unknown]
  - Therapy interrupted [Unknown]
  - Product availability issue [Unknown]
